FAERS Safety Report 9011829 (Version 1)
Quarter: 2013Q1

REPORT INFORMATION
  Report Type: Spontaneous
  Country: CN (occurrence: CN)
  Receive Date: 20130113
  Receipt Date: 20130113
  Transmission Date: 20140127
  Serious: Yes (Other)
  Sender: FDA-Public Use
  Company Number: PHHY2012CN122681

PATIENT
  Age: 58 Year
  Sex: Male
  Weight: 69 kg

DRUGS (1)
  1. VOTALIN [Suspect]
     Indication: ARTHRALGIA
     Dosage: 1 G, TID
     Route: 061
     Dates: start: 20100801, end: 20100815

REACTIONS (2)
  - Anaphylactoid reaction [Recovering/Resolving]
  - Erythema [Recovering/Resolving]
